FAERS Safety Report 9887398 (Version 1)
Quarter: 2014Q1

REPORT INFORMATION
  Report Type: Spontaneous
  Country: US (occurrence: US)
  Receive Date: 20140211
  Receipt Date: 20140211
  Transmission Date: 20141002
  Serious: Yes (Other)
  Sender: FDA-Public Use
  Company Number: US-SHIRE-ALL1-2014-00778

PATIENT
  Sex: Female

DRUGS (3)
  1. VYVANSE [Suspect]
     Indication: ATTENTION DEFICIT/HYPERACTIVITY DISORDER
     Dosage: 40 MG, (ONCE DAILY ON SCHOOL DAYS)
     Route: 048
     Dates: start: 2012, end: 201401
  2. VYVANSE [Suspect]
     Dosage: 30 MG, (ONCE DAILY ON SCHOOL DAYS)
     Route: 048
     Dates: start: 2012, end: 2012
  3. VYVANSE [Suspect]
     Dosage: 20 MG, (ONCE DAILY ON SCHOOL DAYS)
     Route: 048
     Dates: start: 2012, end: 2012

REACTIONS (8)
  - Depersonalisation [Recovering/Resolving]
  - Depression [Recovering/Resolving]
  - Apathy [Recovering/Resolving]
  - Memory impairment [Recovering/Resolving]
  - Personality change [Recovering/Resolving]
  - Flat affect [Recovering/Resolving]
  - Anxiety [Recovering/Resolving]
  - Crying [Recovering/Resolving]
